FAERS Safety Report 8832885 (Version 1)
Quarter: 2012Q4

REPORT INFORMATION
  Report Type: 
  Country: US (occurrence: None)
  Receive Date: 20121009
  Receipt Date: 20121009
  Transmission Date: 20130627
  Serious: Yes (Hospitalization)
  Sender: FDA-Public Use
  Company Number: None

PATIENT
  Sex: Female
  Weight: 80.5 kg

DRUGS (4)
  1. BEVACIZUMAB [Suspect]
  2. LEUCOVORIN CALCIUM [Suspect]
  3. ELOXATIN [Suspect]
  4. 5-FLUOROURACIL [Suspect]

REACTIONS (2)
  - Pneumonia [None]
  - Drug hypersensitivity [None]
